FAERS Safety Report 5268611-1 (Version None)
Quarter: 2007Q1

REPORT INFORMATION
  Report Type: 
  Country: None (occurrence: None)
  Receive Date: 20070313
  Receipt Date: 20070306
  Transmission Date: 20070707
  Serious: Yes (Hospitalization)
  Sender: FDA-Public Use
  Company Number: GRT 2007-11080

PATIENT
  Age: 63 Year
  Sex: Female
  Weight: 54.88 kg

DRUGS (7)
  1. LIDOCAINE [Suspect]
     Indication: ANAESTHESIA
     Dates: start: 20061103
  2. BOTOX [Suspect]
     Indication: SKIN WRINKLING
     Dosage: INTRAMUSCULAR
     Route: 030
     Dates: start: 20061103
  3. EMLA [Concomitant]
  4. LORATADINE [Concomitant]
  5. PREMARIN [Concomitant]
  6. SALBUTAMOL [Concomitant]
  7. DIURETIC [Concomitant]

REACTIONS (4)
  - CONTUSION [None]
  - HYPERSENSITIVITY [None]
  - LIP SWELLING [None]
  - SWELLING FACE [None]
